FAERS Safety Report 25663921 (Version 2)
Quarter: 2025Q3

REPORT INFORMATION
  Report Type: Spontaneous
  Country: US (occurrence: US)
  Receive Date: 20250811
  Receipt Date: 20250903
  Transmission Date: 20251021
  Serious: No
  Sender: ELI LILLY AND COMPANY
  Company Number: US-ELI_LILLY_AND_COMPANY-US202508007759

PATIENT
  Age: 76 Year
  Sex: Female

DRUGS (3)
  1. ZEPBOUND [Suspect]
     Active Substance: TIRZEPATIDE
     Indication: Weight control
     Dosage: 5 MG, WEEKLY (1/W)
     Route: 058
     Dates: start: 202506
  2. ZEPBOUND [Suspect]
     Active Substance: TIRZEPATIDE
     Indication: Weight control
     Dosage: 5 MG, WEEKLY (1/W)
     Route: 058
  3. ZEPBOUND [Suspect]
     Active Substance: TIRZEPATIDE
     Dosage: 5 MG, WEEKLY (1/W)
     Route: 058

REACTIONS (7)
  - Drug ineffective [Unknown]
  - Weight increased [Unknown]
  - Chest pain [Unknown]
  - Pain [Unknown]
  - Back pain [Unknown]
  - Arthralgia [Unknown]
  - Pain in jaw [Unknown]

NARRATIVE: CASE EVENT DATE: 20250826
